FAERS Safety Report 14610279 (Version 3)
Quarter: 2018Q2

REPORT INFORMATION
  Report Type: Spontaneous
  Country: US (occurrence: US)
  Receive Date: 20180307
  Receipt Date: 20180427
  Transmission Date: 20180711
  Serious: Yes (Death, Life-Threatening, Other)
  Sender: FDA-Public Use
  Company Number: US-PFIZER INC-2018091612

PATIENT
  Age: 74 Year
  Sex: Female

DRUGS (9)
  1. PANTOPRAZOLE [Suspect]
     Active Substance: PANTOPRAZOLE
     Indication: GASTROINTESTINAL HAEMORRHAGE
     Dosage: 40 MG, 2X/DAY
     Route: 048
  2. METOPROLOL TARTRATE. [Concomitant]
     Active Substance: METOPROLOL TARTRATE
     Dosage: 25 MG, DAILY ( UNCHANGED FOR MORE THAN A YEAR)
  3. SUCRALFATE. [Concomitant]
     Active Substance: SUCRALFATE
     Indication: OESOPHAGITIS
     Dosage: UNK
  4. SUCRALFATE. [Concomitant]
     Active Substance: SUCRALFATE
     Indication: DUODENAL ULCER
  5. HYDROCHLOROTHIAZIDE. [Concomitant]
     Active Substance: HYDROCHLOROTHIAZIDE
     Dosage: 25 MG, DAILY (UNCHANGED FOR MORE THAN A YEAR)
  6. VITAMIN D3 [Concomitant]
     Active Substance: CHOLECALCIFEROL
     Dosage: 2000 IU, DAILY (UNCHANGED FOR MORE THAN A YEAR)
  7. DONEPEZIL. [Concomitant]
     Active Substance: DONEPEZIL
     Dosage: 10 MG, DAILY(UNCHANGED FOR MORE THAN A YEAR)
  8. ASPIRIN. [Concomitant]
     Active Substance: ASPIRIN
     Dosage: 81 MG, DAILY (UNCHANGED FOR MORE THAN A YEAR)
  9. LISINOPRIL. [Concomitant]
     Active Substance: LISINOPRIL
     Dosage: 5 MG, DAILY ( UNCHANGED FOR MORE THAN A YEAR)

REACTIONS (2)
  - Toxic epidermal necrolysis [Fatal]
  - Stevens-Johnson syndrome [Fatal]
